FAERS Safety Report 17242727 (Version 6)
Quarter: 2024Q3

REPORT INFORMATION
  Report Type: Spontaneous
  Country: US (occurrence: US)
  Receive Date: 20200107
  Receipt Date: 20240708
  Transmission Date: 20241017
  Serious: No
  Sender: BIOGEN
  Company Number: US-BIOGEN-2020BI00824469

PATIENT
  Age: 48 Year
  Sex: Female

DRUGS (3)
  1. TECFIDERA [Suspect]
     Active Substance: DIMETHYL FUMARATE
     Indication: Multiple sclerosis
     Dosage: STOPPED ON AN UNKNOWN DATE
     Route: 050
     Dates: start: 20191207
  2. TECFIDERA [Suspect]
     Active Substance: DIMETHYL FUMARATE
     Dosage: STARTING DOSE?RESTARTED AGAIN ON 10-JAN-2020
     Route: 050
     Dates: start: 20200110
  3. TECFIDERA [Suspect]
     Active Substance: DIMETHYL FUMARATE
     Dosage: MAINTENANCE DOSE
     Route: 050

REACTIONS (13)
  - Product dose omission issue [Unknown]
  - Hypoaesthesia [Not Recovered/Not Resolved]
  - Central nervous system lesion [Not Recovered/Not Resolved]
  - Amnesia [Unknown]
  - Pain in extremity [Unknown]
  - Sensory disturbance [Unknown]
  - Dyskinesia [Unknown]
  - Memory impairment [Unknown]
  - Fatigue [Unknown]
  - Back pain [Unknown]
  - Loss of control of legs [Unknown]
  - Alopecia [Unknown]
  - Feeling hot [Not Recovered/Not Resolved]

NARRATIVE: CASE EVENT DATE: 20200101
